FAERS Safety Report 10886120 (Version 1)
Quarter: 2015Q1

REPORT INFORMATION
  Report Type: Spontaneous
  Country: US (occurrence: None)
  Receive Date: 20150227
  Receipt Date: 20150227
  Transmission Date: 20150721
  Serious: Yes (Life-Threatening, Hospitalization)
  Sender: FDA-Public Use
  Company Number: None

PATIENT
  Age: 79 Year
  Sex: Male
  Weight: 80.73 kg

DRUGS (3)
  1. LIDOCAINE. [Suspect]
     Active Substance: LIDOCAINE
     Indication: OSTEOARTHRITIS
     Dosage: ONCE INTRA-ARTICULAR KNEE?MIXED TOGETHER
     Route: 013
     Dates: start: 20150217
  2. LIDOCAINE 2% [Suspect]
     Active Substance: LIDOCAINE
     Dosage: 6 ML ONCE INTRA-ARTICULAR KNEE?MIXED TOGETHER
     Route: 013
     Dates: start: 20150217
  3. DEPO-MEDROL [Suspect]
     Active Substance: METHYLPREDNISOLONE ACETATE
     Indication: OSTEOARTHRITIS
     Dosage: ONCE INTRA-ARTICULAR KNEE?MIXED TOGETHER
     Route: 013
     Dates: start: 20150217

REACTIONS (3)
  - Arthritis bacterial [None]
  - Joint swelling [None]
  - Injection related reaction [None]

NARRATIVE: CASE EVENT DATE: 20150217
